FAERS Safety Report 22949658 (Version 2)
Quarter: 2023Q4

REPORT INFORMATION
  Report Type: Spontaneous
  Country: US (occurrence: US)
  Receive Date: 20230915
  Receipt Date: 20231102
  Transmission Date: 20240110
  Serious: No
  Sender: FDA-Public Use
  Company Number: US-BIOGEN-2022BI01160358

PATIENT
  Sex: Female

DRUGS (1)
  1. VUMERITY [Suspect]
     Active Substance: DIROXIMEL FUMARATE
     Indication: Multiple sclerosis
     Route: 050
     Dates: start: 20210525, end: 20231016

REACTIONS (3)
  - Urinary tract infection [Recovered/Resolved]
  - Dermatitis acneiform [Not Recovered/Not Resolved]
  - Flushing [Recovered/Resolved]
